FAERS Safety Report 4735645-2 (Version None)
Quarter: 2005Q3

REPORT INFORMATION
  Report Type: 
  Country: None (occurrence: None)
  Receive Date: 20050805
  Receipt Date: 20050729
  Transmission Date: 20060218
  Serious: Yes (Hospitalization)
  Sender: FDA-Public Use
  Company Number: GB-GLAXOSMITHKLINE-B0389231A

PATIENT
  Age: 75 Year
  Sex: Male

DRUGS (7)
  1. AVANDIA [Suspect]
     Route: 065
  2. METFORMIN [Concomitant]
  3. SULPHONYLUREA [Concomitant]
  4. DIPYRIDAMOLE [Concomitant]
  5. ASPIRIN [Concomitant]
  6. CERIVASTATIN [Concomitant]
  7. RAMIPRIL [Concomitant]

REACTIONS (4)
  - CARDIAC FAILURE [None]
  - CYANOSIS [None]
  - GENERALISED OEDEMA [None]
  - OEDEMA PERIPHERAL [None]
